FAERS Safety Report 23365906 (Version 3)
Quarter: 2024Q1

REPORT INFORMATION
  Report Type: Spontaneous
  Country: AR (occurrence: AR)
  Receive Date: 20240104
  Receipt Date: 20240224
  Transmission Date: 20240409
  Serious: Yes (Life-Threatening, Hospitalization)
  Sender: FDA-Public Use
  Company Number: AR-BoehringerIngelheim-2024-BI-000185

PATIENT
  Age: 42 Year
  Sex: Female
  Weight: 92 kg

DRUGS (1)
  1. ALTEPLASE [Suspect]
     Active Substance: ALTEPLASE
     Indication: Ischaemic stroke
     Route: 065
     Dates: start: 20231229, end: 20231229

REACTIONS (3)
  - Sinus bradycardia [Recovered/Resolved]
  - Depressed level of consciousness [Not Recovered/Not Resolved]
  - Subarachnoid haemorrhage [Not Recovered/Not Resolved]

NARRATIVE: CASE EVENT DATE: 20231229
